FAERS Safety Report 26094815 (Version 2)
Quarter: 2025Q4

REPORT INFORMATION
  Report Type: Spontaneous
  Country: CN (occurrence: CN)
  Receive Date: 20251126
  Receipt Date: 20251231
  Transmission Date: 20260118
  Serious: Yes (Other)
  Sender: BEIGENE
  Company Number: CN-BEONE MEDICINES-BGN-2025-020788

PATIENT
  Age: 67 Year
  Sex: Male

DRUGS (3)
  1. BRUKINSA [Suspect]
     Active Substance: ZANUBRUTINIB
     Indication: Mantle cell lymphoma
     Dosage: 160 MILLIGRAM (2 CAPSULES), BID
     Dates: start: 2021
  2. BRUKINSA [Suspect]
     Active Substance: ZANUBRUTINIB
     Dosage: 240MG A DAY (BID, 2 CAPSULES EACH TIME, 1 CAPSULE EACH TIME)
  3. BRUKINSA [Suspect]
     Active Substance: ZANUBRUTINIB
     Dosage: 320MG (4 CAPSULES A DAY)

REACTIONS (5)
  - Pharyngeal haematoma [Unknown]
  - Epistaxis [Recovered/Resolved]
  - Anaemia [Unknown]
  - Dysphonia [Not Recovered/Not Resolved]
  - Influenza [Unknown]

NARRATIVE: CASE EVENT DATE: 20240101
